FAERS Safety Report 20851032 (Version 4)
Quarter: 2023Q1

REPORT INFORMATION
  Report Type: Spontaneous
  Country: US (occurrence: US)
  Receive Date: 20220519
  Receipt Date: 20230123
  Transmission Date: 20230418
  Serious: No
  Sender: FDA-Public Use
  Company Number: US-PFIZER INC-202200677419

PATIENT
  Age: 63 Year
  Sex: Female

DRUGS (3)
  1. LORBRENA [Suspect]
     Active Substance: LORLATINIB
     Dosage: 1 DF, 1X/DAY
     Dates: start: 20220501
  2. LORBRENA [Suspect]
     Active Substance: LORLATINIB
     Dosage: 100 MG
  3. LORBRENA [Suspect]
     Active Substance: LORLATINIB
     Dosage: 75MG 1 TABLET ONCE DAILY

REACTIONS (6)
  - Fatigue [Unknown]
  - Somnolence [Unknown]
  - Product prescribing error [Unknown]
  - Neoplasm progression [Unknown]
  - Nasopharyngitis [Unknown]
  - Thinking abnormal [Unknown]

NARRATIVE: CASE EVENT DATE: 20220501
